FAERS Safety Report 8943507 (Version 1)
Quarter: 2012Q4

REPORT INFORMATION
  Report Type: 
  Country: US (occurrence: US)
  Receive Date: 20121204
  Receipt Date: 20121204
  Transmission Date: 20130627
  Serious: No
  Sender: FDA-Public Use
  Company Number: US-PFIZER INC-2012302103

PATIENT
  Age: 70 Year
  Sex: Female
  Weight: 47.62 kg

DRUGS (4)
  1. SUTENT [Suspect]
     Indication: KIDNEY CANCER
     Dosage: 37.5 mg, 1x/day (3 capsules of 12.5 mg)
     Route: 048
     Dates: start: 201205
  2. LIPITOR [Concomitant]
     Indication: HIGH CHOLESTEROL
     Dosage: UNK
  3. OMEPRAZOLE [Concomitant]
     Indication: DUODENAL ULCER
     Dosage: UNK
  4. VITAMIN C [Concomitant]
     Dosage: UNK

REACTIONS (6)
  - Stomatitis [Unknown]
  - Hypophagia [Unknown]
  - Hypertension [Unknown]
  - Hypothyroidism [Unknown]
  - Dacryostenosis acquired [Recovered/Resolved]
  - Lacrimation increased [Recovered/Resolved]
